FAERS Safety Report 5402814-8 (Version None)
Quarter: 2007Q3

REPORT INFORMATION
  Report Type: 
  Country: None (occurrence: None)
  Receive Date: 20070730
  Receipt Date: 20070712
  Transmission Date: 20080115
  Serious: Yes (Life-Threatening, Hospitalization)
  Sender: FDA-Public Use
  Company Number: DSA_30242_2007

PATIENT
  Age: 67 Year
  Sex: Female

DRUGS (4)
  1. ENALAPRIL MALEATE [Suspect]
     Indication: ANGIOPATHY
     Dosage: (DF) (DF)
  2. BISOPROLOL FUMARATE [Concomitant]
  3. BUMETANIDE [Concomitant]
  4. ISOSORBIDE MONONITRATE [Concomitant]

REACTIONS (10)
  - BLOOD BICARBONATE DECREASED [None]
  - BLOOD PRESSURE DIASTOLIC DECREASED [None]
  - BLOOD PRESSURE SYSTOLIC DECREASED [None]
  - BRADYCARDIA [None]
  - DIALYSIS [None]
  - DIARRHOEA [None]
  - GLASGOW COMA SCALE ABNORMAL [None]
  - HYPERKALAEMIA [None]
  - RENAL FAILURE ACUTE [None]
  - UNRESPONSIVE TO STIMULI [None]
